FAERS Safety Report 18528662 (Version 2)
Quarter: 2021Q1

REPORT INFORMATION
  Report Type: Spontaneous
  Country: US (occurrence: US)
  Receive Date: 20201120
  Receipt Date: 20210128
  Transmission Date: 20210419
  Serious: Yes (Death, Hospitalization, Other)
  Sender: FDA-Public Use
  Company Number: US-PURDUE-USA-2020-0177819

PATIENT
  Sex: Female

DRUGS (3)
  1. HYDROMORPHONE HCL ORAL SOLUTION (RHODES) [Suspect]
     Active Substance: HYDROMORPHONE HYDROCHLORIDE
     Indication: PRODUCT USED FOR UNKNOWN INDICATION
     Dosage: UNK
     Route: 048
  2. OXYCODONE/ ACETAMINOPHEN TABLETS [Suspect]
     Active Substance: ACETAMINOPHEN\OXYCODONE HYDROCHLORIDE
     Indication: ABDOMINAL DISCOMFORT
     Dosage: UNK
     Route: 048
  3. OXYCODONE HCL CR TABLETS (SIMILAR TO NDA 22?272) [Suspect]
     Active Substance: OXYCODONE HYDROCHLORIDE
     Indication: PRODUCT USED FOR UNKNOWN INDICATION
     Dosage: UNK
     Route: 048

REACTIONS (18)
  - Lung carcinoma cell type unspecified stage IV [Fatal]
  - Depression [Unknown]
  - Anger [Unknown]
  - Mental disorder [Unknown]
  - General physical health deterioration [Unknown]
  - Memory impairment [Unknown]
  - Abdominal pain upper [Unknown]
  - Dyspnoea [Unknown]
  - Accidental overdose [Unknown]
  - Cognitive disorder [Unknown]
  - Infection [Unknown]
  - Drug dependence [Unknown]
  - Lethargy [Unknown]
  - Respiratory failure [Fatal]
  - Gastric disorder [Unknown]
  - Overdose [Unknown]
  - Emotional distress [Unknown]
  - Proctalgia [Unknown]

NARRATIVE: CASE EVENT DATE: 2010
